FAERS Safety Report 7942689 (Version 2)
Quarter: 2019Q1

REPORT INFORMATION
  Report Type: Spontaneous
  Country: GB (occurrence: GB)
  Receive Date: 20110512
  Receipt Date: 20190304
  Transmission Date: 20190418
  Serious: Yes (Life-Threatening, Other)
  Sender: FDA-Public Use
  Company Number: GB-PFIZER INC-2011100499

PATIENT
  Age: 43 Year
  Sex: Female

DRUGS (2)
  1. CHAMPIX [Suspect]
     Active Substance: VARENICLINE TARTRATE
     Dosage: 1 MG, 2X/DAY
     Route: 048
     Dates: start: 20110302, end: 20110419
  2. CITALOPRAM [Concomitant]
     Active Substance: CITALOPRAM HYDROBROMIDE
     Dosage: UNK

REACTIONS (5)
  - Suicidal ideation [Recovering/Resolving]
  - Alcohol abuse [Unknown]
  - Aggression [Unknown]
  - Mood altered [Unknown]
  - Suicide attempt [Unknown]

NARRATIVE: CASE EVENT DATE: 2011
